FAERS Safety Report 9994832 (Version 1)
Quarter: 2014Q1

REPORT INFORMATION
  Report Type: Spontaneous
  Country: CA (occurrence: None)
  Receive Date: 20140307
  Receipt Date: 20140307
  Transmission Date: 20141002
  Serious: No
  Sender: FDA-Public Use
  Company Number: None

PATIENT
  Age: 27 Year
  Sex: Male
  Weight: 72.58 kg

DRUGS (2)
  1. CLOPIXOL [Suspect]
     Indication: PSYCHOTIC DISORDER
     Dosage: 1 INJECTION EVERY 2 WEEKS INTO THE MUSCLE
     Route: 030
     Dates: start: 20090601, end: 20100323
  2. VALPROIC ACID [Suspect]

REACTIONS (4)
  - Penile discharge [None]
  - Skin odour abnormal [None]
  - Secretion discharge [None]
  - Lip disorder [None]
